FAERS Safety Report 21198876 (Version 3)
Quarter: 2022Q4

REPORT INFORMATION
  Report Type: Spontaneous
  Country: US (occurrence: US)
  Receive Date: 20220811
  Receipt Date: 20221014
  Transmission Date: 20230113
  Serious: No
  Sender: FDA-Public Use
  Company Number: US-BRISTOL-MYERS SQUIBB COMPANY-2022-071098

PATIENT
  Age: 75 Year
  Sex: Male

DRUGS (4)
  1. POMALYST [Suspect]
     Active Substance: POMALIDOMIDE
     Indication: Plasma cell myeloma
     Dosage: FREQ: TAKE 1 CAPSULE BY MOUTH EVERYDAY FOR 21 DAYS ON THEN 7 DAYS OFF, REPEAT EVERY 28 DAYS
     Route: 048
  2. POMALYST [Suspect]
     Active Substance: POMALIDOMIDE
     Route: 048
     Dates: start: 20220609
  3. POMALYST [Suspect]
     Active Substance: POMALIDOMIDE
     Route: 048
  4. POMALYST [Suspect]
     Active Substance: POMALIDOMIDE
     Dosage: FREQ - TAKE 1 CAPSULE BY MOUTH EVERY DAY FOR 21 DAYS, THEN OFF FOR 7 DAYS THEN REPEAT.
     Route: 048
     Dates: start: 20220609

REACTIONS (5)
  - Adverse event [Unknown]
  - Headache [Recovered/Resolved]
  - Arthralgia [Unknown]
  - Myalgia [Unknown]
  - Dysphagia [Unknown]
